FAERS Safety Report 8317255-3 (Version None)
Quarter: 2012Q2

REPORT INFORMATION
  Report Type: 
  Country: None (occurrence: None)
  Receive Date: 20120425
  Receipt Date: 20120418
  Transmission Date: 20120825
  Serious: Yes (Hospitalization)
  Sender: FDA-Public Use
  Company Number: 2012SP021090

PATIENT
  Age: 43 Year
  Sex: Female

DRUGS (1)
  1. ASENAPINE (ASENAPINE /05706901/) [Suspect]
     Indication: SCHIZOPHRENIA
     Dosage: 5 MG, BID, SL
     Route: 060
     Dates: start: 20110711, end: 20120417

REACTIONS (1)
  - WATER INTOXICATION [None]
